FAERS Safety Report 10151997 (Version 5)
Quarter: 2014Q3

REPORT INFORMATION
  Report Type: Spontaneous
  Country: JP (occurrence: None)
  Receive Date: 20140501
  Receipt Date: 20140709
  Transmission Date: 20150326
  Serious: Yes (Hospitalization, Other)
  Sender: FDA-Public Use
  Company Number: ADR-2014-00722

PATIENT
  Age: 57 Year
  Sex: Male
  Weight: 70 kg

DRUGS (2)
  1. ORAL GABALON [Suspect]
     Active Substance: BACLOFEN
     Dosage: 10 MG/DAY
  2. GABALON [Suspect]
     Active Substance: BACLOFEN
     Indication: CEREBRAL HAEMORRHAGE
     Dosage: 50 MCG/DAY

REACTIONS (10)
  - Device kink [None]
  - Device occlusion [None]
  - Device malfunction [None]
  - Muscle spasms [None]
  - Muscle spasticity [None]
  - Arachnoiditis [None]
  - Drug ineffective [None]
  - Condition aggravated [None]
  - Device dislocation [None]
  - Device connection issue [None]
